FAERS Safety Report 5776216-9 (Version None)
Quarter: 2008Q2

REPORT INFORMATION
  Report Type: 
  Country: None (occurrence: None)
  Receive Date: 20080617
  Receipt Date: 20080617
  Transmission Date: 20081010
  Serious: Yes (Other)
  Sender: FDA-Public Use
  Company Number: None

PATIENT
  Sex: Male
  Weight: 117.9352 kg

DRUGS (2)
  1. CLOTRIMAZOLE AND BETAMETHASONE DIPROPIONATE [Suspect]
     Dosage: ^GLOB^ AFTER SHOWER CUTANEOUS
     Route: 058
  2. FLUOROURACIL [Suspect]
     Dosage: ^GLOB^ 2 DAILY IF EVIDENT CUTANEOUS
     Route: 003

REACTIONS (7)
  - ERYTHEMA [None]
  - MALAISE [None]
  - MEDICATION ERROR [None]
  - PAIN OF SKIN [None]
  - PHARMACEUTICAL PRODUCT COMPLAINT [None]
  - SCROTAL SWELLING [None]
  - WOUND SECRETION [None]
